FAERS Safety Report 5917656-4 (Version None)
Quarter: 2008Q4

REPORT INFORMATION
  Report Type: 
  Country: None (occurrence: None)
  Receive Date: 20081009
  Receipt Date: 20081001
  Transmission Date: 20090506
  Serious: Yes (Hospitalization)
  Sender: FDA-Public Use
  Company Number: 2008SP013044

PATIENT
  Age: 43 Year
  Sex: Male

DRUGS (2)
  1. PEGINTERFERON ALFA-2B (S-P) (PEGINTERFERON ALFA-2B) [Suspect]
     Indication: HEPATITIS C
     Dosage: 100 MCG; QW;
     Dates: start: 20040301, end: 20040601
  2. AMANTADINE HCL [Concomitant]

REACTIONS (12)
  - ABDOMINAL PAIN [None]
  - CRYOGLOBULINAEMIA [None]
  - DIARRHOEA [None]
  - GLOMERULONEPHRITIS MEMBRANOPROLIFERATIVE [None]
  - HYPERTENSION [None]
  - MELAENA [None]
  - PLEURAL EFFUSION [None]
  - PURPURA [None]
  - RENAL FAILURE CHRONIC [None]
  - RENAL IMPAIRMENT [None]
  - RHEUMATOID FACTOR INCREASED [None]
  - VASCULITIS [None]
